FAERS Safety Report 6175207-6 (Version None)
Quarter: 2009Q2

REPORT INFORMATION
  Report Type: 
  Country: None (occurrence: None)
  Receive Date: 20090430
  Receipt Date: 20090122
  Transmission Date: 20091009
  Serious: No
  Sender: FDA-Public Use
  Company Number: US-ASTRAZENECA-2009UW02256

PATIENT
  Age: 22482 Day
  Sex: Female
  Weight: 68 kg

DRUGS (4)
  1. NEXIUM [Suspect]
     Indication: GASTROOESOPHAGEAL REFLUX DISEASE
     Route: 048
     Dates: start: 20090112
  2. SINGULAIR [Concomitant]
     Indication: ASTHMA
  3. ALVESCO [Concomitant]
  4. RHINOCORT [Concomitant]
     Indication: RHINITIS

REACTIONS (3)
  - ABDOMINAL DISCOMFORT [None]
  - INCREASED APPETITE [None]
  - IRRITABILITY [None]
